FAERS Safety Report 7064298-6 (Version None)
Quarter: 2010Q4

REPORT INFORMATION
  Report Type: 
  Country: None (occurrence: None)
  Receive Date: 20101027
  Receipt Date: 20101016
  Transmission Date: 20110411
  Serious: Yes (Hospitalization)
  Sender: FDA-Public Use
  Company Number: CA-JNJFOC-20101005204

PATIENT
  Sex: Female
  Weight: 65 kg

DRUGS (12)
  1. REMICADE [Suspect]
     Indication: CROHN'S DISEASE
     Dosage: WEEK 2 INFUSION
     Route: 042
  2. REMICADE [Suspect]
     Dosage: (WEEK 0) RESTARTED INFLIXIMAB THERAPY
     Route: 042
  3. REMICADE [Suspect]
     Route: 042
  4. PREDNISONE [Concomitant]
     Route: 048
  5. MORPHINE [Concomitant]
  6. IMURAN [Concomitant]
     Route: 048
  7. AMITRIPTYLINE HCL [Concomitant]
     Route: 048
  8. ZOPICLONE [Concomitant]
  9. NABILONE [Concomitant]
  10. PANTOLOC [Concomitant]
     Route: 048
  11. VITAMIN D [Concomitant]
  12. TYLENOL W/ CODEINE NO. 4 [Concomitant]

REACTIONS (3)
  - DRUG EFFECT DECREASED [None]
  - MYOCARDIAL INFARCTION [None]
  - PNEUMONIA [None]
